FAERS Safety Report 13873785 (Version 4)
Quarter: 2018Q1

REPORT INFORMATION
  Report Type: Report from Study
  Country: CA (occurrence: CA)
  Receive Date: 20170816
  Receipt Date: 20180117
  Transmission Date: 20180508
  Serious: Yes (Hospitalization, Other)
  Sender: FDA-Public Use
  Company Number: CA-BRISTOL-MYERS SQUIBB COMPANY-BMS-2017-073377

PATIENT
  Sex: Male

DRUGS (1)
  1. ABATACEPT [Suspect]
     Active Substance: ABATACEPT
     Indication: RHEUMATOID ARTHRITIS
     Dosage: 750 MG, Q4WK
     Route: 042
     Dates: start: 20160607

REACTIONS (6)
  - Upper limb fracture [Unknown]
  - Joint swelling [Recovering/Resolving]
  - Fall [Unknown]
  - Adverse event [Unknown]
  - Oesophageal varices haemorrhage [Not Recovered/Not Resolved]
  - Humerus fracture [Unknown]
